FAERS Safety Report 13844741 (Version 4)
Quarter: 2019Q1

REPORT INFORMATION
  Report Type: Spontaneous
  Country: US (occurrence: US)
  Receive Date: 20170808
  Receipt Date: 20190124
  Transmission Date: 20190417
  Serious: Yes (Other)
  Sender: FDA-Public Use
  Company Number: US-PFIZER INC-2017342005

PATIENT
  Age: 49 Year
  Sex: Male
  Weight: 84 kg

DRUGS (3)
  1. ZITHROMAX [Suspect]
     Active Substance: AZITHROMYCIN DIHYDRATE
     Indication: OROPHARYNGEAL PAIN
     Dosage: UNK
     Dates: start: 20141214, end: 20141219
  2. LISINOPRIL. [Concomitant]
     Active Substance: LISINOPRIL
     Indication: HYPERTENSION
     Dosage: 20 MG, 1X/DAY
     Route: 048
  3. ZITHROMAX [Suspect]
     Active Substance: AZITHROMYCIN DIHYDRATE
     Indication: OROPHARYNGEAL PAIN
     Dosage: 500 MG, 1X/DAY (250 MG, TWO PILLS)
     Dates: start: 20160113

REACTIONS (10)
  - Tinnitus [Not Recovered/Not Resolved]
  - Social avoidant behaviour [Unknown]
  - Headache [Not Recovered/Not Resolved]
  - Heart rate irregular [Unknown]
  - Dizziness [Unknown]
  - Vertigo [Recovered/Resolved with Sequelae]
  - Irritability [Unknown]
  - Amnesia [Unknown]
  - Suicidal ideation [Not Recovered/Not Resolved]
  - Balance disorder [Not Recovered/Not Resolved]

NARRATIVE: CASE EVENT DATE: 20141215
